FAERS Safety Report 18714217 (Version 1)
Quarter: 2021Q1

REPORT INFORMATION
  Report Type: Other
  Country: GB (occurrence: GB)
  Receive Date: 20210107
  Receipt Date: 20210107
  Transmission Date: 20210419
  Serious: Yes (Hospitalization, Disabling)
  Sender: FDA-Public Use
  Company Number: GB-INCYTE CORPORATION-2020IN013094

PATIENT

DRUGS (1)
  1. JAKAVI [Suspect]
     Active Substance: RUXOLITINIB
     Indication: MYELOFIBROSIS
     Dosage: 40 MG,QD
     Route: 048
     Dates: start: 202005, end: 202010

REACTIONS (3)
  - Mouth ulceration [Not Recovered/Not Resolved]
  - Facial paralysis [Not Recovered/Not Resolved]
  - Herpes simplex [Recovered/Resolved]

NARRATIVE: CASE EVENT DATE: 20200528
